FAERS Safety Report 9511772 (Version 11)
Quarter: 2014Q1

REPORT INFORMATION
  Report Type: Spontaneous
  Country: US (occurrence: US)
  Receive Date: 20130910
  Receipt Date: 20140319
  Transmission Date: 20141002
  Serious: Yes (Hospitalization, Other)
  Sender: FDA-Public Use
  Company Number: US-009507513-1309USA003883

PATIENT
  Age: 57 Year
  Sex: Female

DRUGS (10)
  1. PEGINTRON [Suspect]
     Indication: HEPATITIS C
     Dosage: UNK, QW
     Dates: start: 20130901, end: 20131028
  2. PEGINTRON [Suspect]
     Dosage: UNK
     Dates: start: 20140101, end: 20140228
  3. REBETOL [Suspect]
     Indication: HEPATITIS C
     Dosage: UNK, BID
     Route: 048
     Dates: start: 20130901, end: 20131028
  4. REBETOL [Suspect]
     Dosage: UNK, BID
     Route: 048
     Dates: start: 20140101, end: 20140228
  5. VICTRELIS [Suspect]
     Indication: HEPATITIS C
     Dosage: UNK UNK, TID
     Route: 048
     Dates: start: 20130929, end: 20131028
  6. VICTRELIS [Suspect]
     Dosage: UNK, QD
     Route: 048
     Dates: start: 20140207, end: 20140228
  7. MORPHINE [Concomitant]
  8. XANAX [Concomitant]
  9. ZOFRAN [Concomitant]
  10. METHADONE HYDROCHLORIDE [Concomitant]

REACTIONS (49)
  - Pneumonia [Unknown]
  - Pyrexia [Unknown]
  - Burning sensation [Unknown]
  - Balance disorder [Unknown]
  - Pulmonary congestion [Unknown]
  - Tinnitus [Unknown]
  - Tinnitus [Unknown]
  - Nasal congestion [Unknown]
  - Back pain [Unknown]
  - Somnolence [Unknown]
  - Rhinorrhoea [Unknown]
  - Feeling abnormal [Unknown]
  - Nausea [Unknown]
  - Abdominal pain upper [Unknown]
  - Irritability [Unknown]
  - Dizziness [Unknown]
  - Headache [Unknown]
  - Dyspnoea [Unknown]
  - Platelet count decreased [Unknown]
  - Asthenia [Unknown]
  - Dehydration [Unknown]
  - Anxiety [Unknown]
  - Thrombocytopenia [Unknown]
  - Fatigue [Unknown]
  - Visual acuity reduced [Unknown]
  - Vision blurred [Unknown]
  - Adverse event [Not Recovered/Not Resolved]
  - Incorrect product storage [Unknown]
  - Vomiting [Unknown]
  - Headache [Unknown]
  - Nausea [Unknown]
  - Fatigue [Unknown]
  - Pyrexia [Unknown]
  - Headache [Unknown]
  - Decreased appetite [Unknown]
  - Vomiting [Unknown]
  - Abasia [Unknown]
  - Dehydration [Unknown]
  - Asthenia [Unknown]
  - Nausea [Unknown]
  - Chest pain [Unknown]
  - Fatigue [Unknown]
  - Dry mouth [Unknown]
  - Dehydration [Unknown]
  - Dry mouth [Unknown]
  - Vomiting [Unknown]
  - Dysphagia [Unknown]
  - Memory impairment [Unknown]
  - Dehydration [Unknown]
